FAERS Safety Report 13793987 (Version 2)
Quarter: 2017Q3

REPORT INFORMATION
  Report Type: Spontaneous
  Country: US (occurrence: US)
  Receive Date: 20170726
  Receipt Date: 20170811
  Transmission Date: 20171127
  Serious: Yes (Other)
  Sender: FDA-Public Use
  Company Number: US-AMGEN-USASP2017108603

PATIENT
  Age: 79 Year
  Sex: Female
  Weight: 50.34 kg

DRUGS (1)
  1. PROLIA [Suspect]
     Active Substance: DENOSUMAB
     Indication: OSTEOPOROSIS POSTMENOPAUSAL
     Dosage: UNK , Q6MO
     Route: 065

REACTIONS (5)
  - Malignant melanoma [Unknown]
  - Chest pain [Recovered/Resolved]
  - Rhinorrhoea [Unknown]
  - Dysphonia [Unknown]
  - Hypoaesthesia [Not Recovered/Not Resolved]
